FAERS Safety Report 23731290 (Version 1)
Quarter: 2024Q2

REPORT INFORMATION
  Report Type: Spontaneous
  Country: US (occurrence: None)
  Receive Date: 20240410
  Receipt Date: 20240410
  Transmission Date: 20240716
  Serious: Yes (Death)
  Sender: FDA-Public Use
  Company Number: None

PATIENT
  Sex: Male

DRUGS (1)
  1. EPCLUSA [Suspect]
     Active Substance: SOFOSBUVIR\VELPATASVIR
     Dosage: FREQ: TAKE 1 TABLET BY MOUTH DAILY FOR 12 WEEKS?
     Route: 048
     Dates: start: 20231003

REACTIONS (1)
  - Death [None]
